FAERS Safety Report 10699904 (Version 1)
Quarter: 2015Q1

REPORT INFORMATION
  Report Type: Spontaneous
  Country: US (occurrence: None)
  Receive Date: 20150108
  Receipt Date: 20150108
  Transmission Date: 20150721
  Serious: No
  Sender: FDA-Public Use
  Company Number: None

PATIENT
  Age: 68 Year
  Sex: Female
  Weight: 56.25 kg

DRUGS (2)
  1. ENTYVIO INFUSIONS [Concomitant]
  2. REMICADE [Suspect]
     Active Substance: INFLIXIMAB
     Indication: COLITIS ULCERATIVE
     Dosage: 300MG, EVERY 8 WEEKS, INTRAVENOUS
     Route: 042
     Dates: start: 20140914, end: 20141231

REACTIONS (1)
  - Alopecia [None]

NARRATIVE: CASE EVENT DATE: 20141215
